FAERS Safety Report 9924956 (Version 1)
Quarter: 2014Q1

REPORT INFORMATION
  Report Type: Spontaneous
  Country: GB (occurrence: GB)
  Receive Date: 20140226
  Receipt Date: 20140226
  Transmission Date: 20141002
  Serious: Yes (Other)
  Sender: FDA-Public Use
  Company Number: GB-009507513-1402GBR010905

PATIENT
  Sex: Male

DRUGS (5)
  1. COSOPT PRESERVATIVE-FREE SINGLE DOSE EYE DROPS [Suspect]
     Route: 047
  2. PROSTATA [Concomitant]
  3. ASPIRIN [Concomitant]
  4. OMEPRAZOLE [Concomitant]
     Route: 048
  5. TAFLUPROST [Concomitant]
     Route: 047

REACTIONS (3)
  - Blindness unilateral [Unknown]
  - Eye disorder [Unknown]
  - Product quality issue [Unknown]
